FAERS Safety Report 4919860-0 (Version None)
Quarter: 2006Q1

REPORT INFORMATION
  Report Type: 
  Country: None (occurrence: None)
  Receive Date: 20060221
  Receipt Date: 20060221
  Transmission Date: 20060701
  Serious: Yes (Death, Other)
  Sender: FDA-Public Use
  Company Number: None

PATIENT
  Sex: Female
  Weight: 57.5 kg

DRUGS (8)
  1. TAXOTERE [Suspect]
     Indication: UTERINE CANCER
     Dosage: 168 MG
     Dates: start: 20051006, end: 20051020
  2. GEMCITABINE HYDROCHLORIDE [Suspect]
     Dosage: 2862 MG
     Dates: start: 20051006, end: 20051020
  3. EASY FIBER [Concomitant]
  4. ASPARAGUS [Concomitant]
  5. COUMADIN [Concomitant]
  6. DECADRON SRC [Concomitant]
  7. ECHINACCA [Concomitant]
  8. VITAMINS [Concomitant]

REACTIONS (12)
  - AGITATION [None]
  - ASCITES [None]
  - BODY TEMPERATURE INCREASED [None]
  - DELIRIUM [None]
  - HAEMOGLOBIN DECREASED [None]
  - INTERNATIONAL NORMALISED RATIO INCREASED [None]
  - INTESTINAL OBSTRUCTION [None]
  - LOSS OF CONSCIOUSNESS [None]
  - NEOPLASM PROGRESSION [None]
  - PULMONARY EMBOLISM [None]
  - SMALL INTESTINAL OBSTRUCTION [None]
  - VOMITING [None]
